FAERS Safety Report 23268225 (Version 1)
Quarter: 2023Q4

REPORT INFORMATION
  Report Type: Report from Study
  Country: ES (occurrence: ES)
  Receive Date: 20231206
  Receipt Date: 20231206
  Transmission Date: 20240110
  Serious: No
  Sender: FDA-Public Use
  Company Number: ES-BIOGEN-2023BI01237987

PATIENT
  Age: 75 Year
  Sex: Female
  Weight: 71.4 kg

DRUGS (8)
  1. ADUCANUMAB [Suspect]
     Active Substance: ADUCANUMAB
     Indication: Dementia Alzheimer^s type
     Dosage: TITRATION PERIOD
     Route: 050
     Dates: start: 20230726, end: 20230726
  2. ADUCANUMAB [Suspect]
     Active Substance: ADUCANUMAB
     Dosage: TITRATION PERIOD
     Route: 050
     Dates: start: 20230822, end: 20230822
  3. ADUCANUMAB [Suspect]
     Active Substance: ADUCANUMAB
     Dosage: TITRATION PERIOD
     Route: 050
     Dates: start: 20230919, end: 20230919
  4. ADUCANUMAB [Suspect]
     Active Substance: ADUCANUMAB
     Dosage: TITRATION PERIOD
     Route: 050
     Dates: start: 20231018, end: 20231018
  5. NEURACEQ [Suspect]
     Active Substance: FLORBETABEN F-18
     Indication: Positron emission tomogram
     Route: 050
     Dates: start: 20230706, end: 20230706
  6. CANDESARTAN [Concomitant]
     Active Substance: CANDESARTAN
     Route: 050
     Dates: start: 2018
  7. VORTIOXETINE [Concomitant]
     Active Substance: VORTIOXETINE
     Route: 050
     Dates: start: 202110
  8. RISPERIDONE [Concomitant]
     Active Substance: RISPERIDONE
     Route: 050
     Dates: start: 20221222

REACTIONS (1)
  - Amyloid related imaging abnormality-oedema/effusion [Not Recovered/Not Resolved]

NARRATIVE: CASE EVENT DATE: 20231121
